FAERS Safety Report 11215360 (Version 1)
Quarter: 2015Q2

REPORT INFORMATION
  Report Type: Spontaneous
  Country: FR (occurrence: FR)
  Receive Date: 20150624
  Receipt Date: 20150624
  Transmission Date: 20150821
  Serious: Yes (Hospitalization)
  Sender: FDA-Public Use
  Company Number: FR-ROCHE-1596876

PATIENT
  Age: 37 Year
  Sex: Male

DRUGS (2)
  1. THERALENE (FRANCE) [Suspect]
     Active Substance: TRIMEPRAZINE
     Indication: PRODUCT USED FOR UNKNOWN INDICATION
     Dosage: ONE FLASK OF 60 ML
     Route: 065
     Dates: start: 20150321, end: 20150321
  2. VALIUM [Suspect]
     Active Substance: DIAZEPAM
     Indication: PRODUCT USED FOR UNKNOWN INDICATION
     Dosage: 40 TABLETS
     Route: 048
     Dates: start: 20150321, end: 20150321

REACTIONS (2)
  - Coma [Recovered/Resolved]
  - Drug level increased [Recovered/Resolved]

NARRATIVE: CASE EVENT DATE: 20150321
